FAERS Safety Report 4667496-1 (Version None)
Quarter: 2005Q2

REPORT INFORMATION
  Report Type: 
  Country: None (occurrence: None)
  Receive Date: 20050520
  Receipt Date: 20050425
  Transmission Date: 20051028
  Serious: Yes (Hospitalization)
  Sender: FDA-Public Use
  Company Number: 200513528US

PATIENT
  Sex: Male

DRUGS (18)
  1. KETEK [Suspect]
     Indication: BRONCHITIS
     Dosage: DOSE: UNK
     Dates: start: 20050330
  2. KETEK [Suspect]
     Indication: PHARYNGITIS
     Dosage: DOSE: UNK
     Dates: start: 20050330
  3. KETEK [Suspect]
     Indication: RESPIRATORY TRACT INFECTION
     Dosage: DOSE: UNK
     Dates: start: 20050330
  4. LOVENOX [Concomitant]
     Indication: DEEP VEIN THROMBOSIS
     Dosage: DOSE: UNK
  5. LOVENOX [Concomitant]
     Indication: TRANSIENT ISCHAEMIC ATTACK
     Dosage: DOSE: UNK
  6. AGGRENOX [Concomitant]
     Indication: TRANSIENT ISCHAEMIC ATTACK
     Dosage: DOSE: UNK
     Dates: start: 20050412
  7. ZOCOR [Concomitant]
     Indication: CARDIOVASCULAR DISORDER
     Route: 048
     Dates: end: 20050408
  8. FLOMAX [Concomitant]
     Dates: start: 20050412
  9. ALLOPURINOL [Concomitant]
     Dates: start: 20050412
  10. ZANTAC [Concomitant]
     Dosage: DOSE: UNK
  11. PRINIVIL [Concomitant]
     Dates: start: 20050408
  12. ATENOLOL [Concomitant]
     Dates: start: 20050412
  13. NORVASC [Concomitant]
     Dosage: DOSE: UNK
     Dates: start: 20050412, end: 20050408
  14. ASPIRIN [Concomitant]
     Dosage: DOSE: UNK
  15. HEPARIN [Concomitant]
     Dosage: DOSE: UNK
  16. ASPIRIN [Concomitant]
     Dosage: DOSE: UNK
  17. TENORMIN [Concomitant]
     Dates: start: 20050408
  18. ZANTAC [Concomitant]
     Dates: start: 20050412

REACTIONS (27)
  - ABDOMINAL PAIN LOWER [None]
  - ALANINE AMINOTRANSFERASE INCREASED [None]
  - ASPARTATE AMINOTRANSFERASE INCREASED [None]
  - ASTHENIA [None]
  - BACK PAIN [None]
  - BLOOD CREATINE PHOSPHOKINASE INCREASED [None]
  - BLOOD URINE PRESENT [None]
  - BRAIN DAMAGE [None]
  - CEREBRAL ARTERY OCCLUSION [None]
  - CEREBRAL INFARCTION [None]
  - COUGH [None]
  - DEHYDRATION [None]
  - DIZZINESS [None]
  - FEELING ABNORMAL [None]
  - FEELING HOT [None]
  - HYPERHIDROSIS [None]
  - HYPOTENSION [None]
  - INFECTION [None]
  - MASS [None]
  - MUSCLE HAEMORRHAGE [None]
  - MYOSITIS [None]
  - PAIN IN EXTREMITY [None]
  - POLYMYOSITIS [None]
  - PYREXIA [None]
  - RENAL FAILURE CHRONIC [None]
  - RHABDOMYOLYSIS [None]
  - VIRAL INFECTION [None]
